FAERS Safety Report 8110766-5 (Version None)
Quarter: 2012Q1

REPORT INFORMATION
  Report Type: 
  Country: None (occurrence: None)
  Receive Date: 20120201
  Receipt Date: 20120201
  Transmission Date: 20120608
  Serious: No
  Sender: FDA-Public Use
  Company Number: None

PATIENT
  Sex: Female
  Weight: 58.7 kg

DRUGS (3)
  1. CARBOPLATIN [Suspect]
     Dosage: 1000 MG
     Dates: end: 20100609
  2. ERBITUX [Suspect]
     Dosage: 3300 MG
     Dates: end: 20100623
  3. TAXOL [Suspect]
     Dosage: 648 MG

REACTIONS (1)
  - PAIN IN EXTREMITY [None]
